FAERS Safety Report 6148543-7 (Version None)
Quarter: 2009Q2

REPORT INFORMATION
  Report Type: 
  Country: None (occurrence: None)
  Receive Date: 20090408
  Receipt Date: 20090331
  Transmission Date: 20091009
  Serious: Yes (Death, Hospitalization)
  Sender: FDA-Public Use
  Company Number: JP-TYCO HEALTHCARE/MALLINCKRODT-T200900554

PATIENT
  Age: 83 Year
  Sex: Female
  Weight: 52 kg

DRUGS (12)
  1. OPTIRAY 300 [Suspect]
     Indication: ANGIOGRAM
     Dosage: 150 ML, SINGLE
     Route: 013
     Dates: start: 20090106, end: 20090106
  2. OPTIRAY 300 [Suspect]
     Indication: THERAPEUTIC EMBOLISATION
  3. ETHYL ESTER OD IODONATED POPPY-SEED OIL FATTY ACID [Suspect]
     Indication: THERAPEUTIC EMBOLISATION
     Dosage: 5 ML (CC), QD
     Route: 013
     Dates: start: 20090106, end: 20090106
  4. GELATINE MICROSPHERES [Suspect]
     Indication: THERAPEUTIC EMBOLISATION
     Dosage: SMALL AMOUNT, QD
     Route: 013
     Dates: start: 20090106, end: 20090106
  5. HEPARIN [Concomitant]
     Indication: THERAPEUTIC EMBOLISATION
     Dosage: 200 IU, QD
     Route: 013
     Dates: start: 20090106, end: 20090106
  6. MENATETRENONE [Concomitant]
     Dosage: ONE CAP, TID
     Route: 048
  7. TOCOPHERYL NICOTINATE [Concomitant]
     Dosage: ONE CAP, TID
     Route: 048
  8. TRAPIDIL [Concomitant]
     Dosage: ONE TAB, TID
     Route: 048
  9. FUROSEMIDE [Concomitant]
     Dosage: 10 MG, QD
     Route: 048
  10. FAMOTIDINE [Concomitant]
     Dosage: 20 MG, QD
     Route: 048
  11. AMLODIPINE BESYLATE [Concomitant]
     Dosage: ONE TAB, QD
     Route: 048
  12. ISOLEUCINE, LEUCINE, VALINE COMPLEX [Concomitant]
     Dosage: 1 PACKAGE, TID
     Route: 048

REACTIONS (1)
  - HYPOTHYROIDISM [None]
